FAERS Safety Report 13386875 (Version 2)
Quarter: 2017Q2

REPORT INFORMATION
  Report Type: Report from Study
  Country: DE (occurrence: DE)
  Receive Date: 20170330
  Receipt Date: 20170406
  Transmission Date: 20170830
  Serious: Yes (Hospitalization)
  Sender: FDA-Public Use
  Company Number: DE-ROCHE-1913032

PATIENT
  Age: 46 Year
  Sex: Female

DRUGS (1)
  1. TOCILIZUMAB [Suspect]
     Active Substance: TOCILIZUMAB
     Indication: RHEUMATOID ARTHRITIS
     Route: 058
     Dates: start: 20160623, end: 20161013

REACTIONS (2)
  - Meniscus injury [Unknown]
  - Meniscal degeneration [Recovering/Resolving]

NARRATIVE: CASE EVENT DATE: 20161114
